FAERS Safety Report 10065396 (Version 3)
Quarter: 2014Q2

REPORT INFORMATION
  Report Type: Spontaneous
  Country: US (occurrence: US)
  Receive Date: 20140408
  Receipt Date: 20140625
  Transmission Date: 20141212
  Serious: Yes (Other)
  Sender: FDA-Public Use
  Company Number: US-GLAXOSMITHKLINE-A1068341A

PATIENT
  Age: 72 Year
  Sex: Female

DRUGS (21)
  1. ADVAIR HFA [Suspect]
     Indication: ASTHMA
     Dosage: 1PUFF TWICE PER DAY
     Route: 055
     Dates: start: 2008
  2. TAGAMET [Suspect]
     Indication: GASTROOESOPHAGEAL REFLUX DISEASE
     Route: 065
  3. CHAMOMILE TEA [Suspect]
     Indication: PRODUCT USED FOR UNKNOWN INDICATION
     Route: 065
  4. MORPHINE [Suspect]
     Indication: PRODUCT USED FOR UNKNOWN INDICATION
     Route: 065
  5. ATENOLOL [Suspect]
     Indication: PRODUCT USED FOR UNKNOWN INDICATION
     Dosage: 12.5MG UNKNOWN
     Route: 065
  6. PENICILLIN [Suspect]
     Indication: PRODUCT USED FOR UNKNOWN INDICATION
     Route: 065
  7. CAFFEINE [Suspect]
     Indication: PRODUCT USED FOR UNKNOWN INDICATION
     Route: 065
  8. VENTOLIN [Suspect]
     Indication: ASTHMA
     Route: 055
     Dates: start: 201201
  9. INFLUENZA VACCINE [Concomitant]
  10. SYNTHROID [Concomitant]
  11. LOPID [Concomitant]
  12. GLUCOPHAGE XR [Concomitant]
  13. LISINOPRIL [Concomitant]
  14. KLOR-CON M [Concomitant]
  15. MULTIVITAMINS [Concomitant]
  16. VITAMIN C [Concomitant]
  17. MAGNESIUM [Concomitant]
  18. VITAMIN B COMPLEX [Concomitant]
  19. VITAMIN D [Concomitant]
  20. POTASSIUM [Concomitant]
  21. METFORMIN [Concomitant]
     Route: 065

REACTIONS (17)
  - Cataract operation [Unknown]
  - Eye laser surgery [Unknown]
  - Atrial fibrillation [Unknown]
  - Ventricular extrasystoles [Unknown]
  - Nausea [Unknown]
  - Retching [Unknown]
  - Asthenia [Unknown]
  - Dizziness [Unknown]
  - Ill-defined disorder [Unknown]
  - Swelling face [Unknown]
  - Local swelling [Unknown]
  - Palpitations [Unknown]
  - Drug hypersensitivity [Unknown]
  - Wheezing [Unknown]
  - Dyspnoea [Unknown]
  - Feeling abnormal [Unknown]
  - Surgery [Unknown]
